FAERS Safety Report 20208430 (Version 1)
Quarter: 2021Q4

REPORT INFORMATION
  Report Type: Spontaneous
  Country: CN (occurrence: CN)
  Receive Date: 20211220
  Receipt Date: 20211220
  Transmission Date: 20220303
  Serious: Yes (Disabling, Other)
  Sender: FDA-Public Use
  Company Number: CN-VIWITPHARMA-2021VWTLIT00045

PATIENT
  Age: 3 Year
  Sex: Male
  Weight: 12 kg

DRUGS (2)
  1. LEVETIRACETAM [Suspect]
     Active Substance: LEVETIRACETAM
     Indication: Seizure
     Route: 065
  2. OXCARBAZEPINE [Suspect]
     Active Substance: OXCARBAZEPINE
     Indication: Seizure
     Route: 065

REACTIONS (3)
  - Intellectual disability [Unknown]
  - Developmental delay [Unknown]
  - Developmental regression [Unknown]
